FAERS Safety Report 5357582-5 (Version None)
Quarter: 2007Q2

REPORT INFORMATION
  Report Type: 
  Country: None (occurrence: None)
  Receive Date: 20070614
  Receipt Date: 20070608
  Transmission Date: 20071010
  Serious: Yes (Other)
  Sender: FDA-Public Use
  Company Number: US-ELI_LILLY_AND_COMPANY-US200706002035

PATIENT
  Age: 72 Year
  Sex: Male
  Weight: 112.47 kg

DRUGS (2)
  1. BYETTA [Suspect]
     Indication: DIABETES MELLITUS NON-INSULIN-DEPENDENT
     Dosage: 10 UG, 2/D
     Route: 058
     Dates: start: 20050101
  2. METAGLIP [Concomitant]
     Dosage: UNK, UNKNOWN

REACTIONS (4)
  - DECREASED APPETITE [None]
  - MALIGNANT MELANOMA [None]
  - NAUSEA [None]
  - WEIGHT DECREASED [None]
